FAERS Safety Report 8431819-8 (Version None)
Quarter: 2012Q2

REPORT INFORMATION
  Report Type: 
  Country: None (occurrence: None)
  Receive Date: 20120613
  Receipt Date: 20120606
  Transmission Date: 20120825
  Serious: Yes (Other)
  Sender: FDA-Public Use
  Company Number: CN-ABBOTT-12P-035-0943804-00

PATIENT
  Age: 62 Year
  Sex: Male

DRUGS (1)
  1. DEPAKENE [Suspect]
     Indication: EPILEPSY
     Dosage: GASTRO-RESISTANT TABLET, ONCE DAILY
     Route: 048
     Dates: start: 20120101

REACTIONS (3)
  - PETIT MAL EPILEPSY [None]
  - EPILEPSY [None]
  - LOSS OF CONSCIOUSNESS [None]
